FAERS Safety Report 20909337 (Version 1)
Quarter: 2022Q2

REPORT INFORMATION
  Report Type: Spontaneous
  Country: CA (occurrence: CA)
  Receive Date: 20220603
  Receipt Date: 20220603
  Transmission Date: 20220720
  Serious: Yes (Life-Threatening, Disabling, Other)
  Sender: FDA-Public Use
  Company Number: CA-BRISTOL-MYERS SQUIBB COMPANY-2022-048712

PATIENT
  Age: 59 Year
  Sex: Female
  Weight: 68 kg

DRUGS (100)
  1. ORENCIA [Suspect]
     Active Substance: ABATACEPT
     Indication: Rheumatoid arthritis
     Route: 058
  2. ORENCIA [Suspect]
     Active Substance: ABATACEPT
     Indication: Rheumatoid arthritis
     Route: 064
  3. ACETAMINOPHEN [Concomitant]
     Active Substance: ACETAMINOPHEN
     Indication: Product used for unknown indication
     Route: 064
  4. ACTEMRA [Concomitant]
     Active Substance: TOCILIZUMAB
     Indication: Rheumatoid arthritis
     Route: 064
  5. ACTEMRA [Concomitant]
     Active Substance: TOCILIZUMAB
     Route: 042
  6. ADALIMUMAB [Concomitant]
     Active Substance: ADALIMUMAB
     Indication: Rheumatoid arthritis
     Dosage: SOLUTION SUBCUTANEOUS
     Route: 064
  7. ADALIMUMAB [Concomitant]
     Active Substance: ADALIMUMAB
     Route: 058
  8. ALENDRONATE SODIUM [Concomitant]
     Active Substance: ALENDRONATE SODIUM
     Indication: Rheumatoid arthritis
     Route: 064
  9. ALENDRONATE SODIUM [Concomitant]
     Active Substance: ALENDRONATE SODIUM
     Route: 048
  10. ALENDRONIC ACID [Concomitant]
     Active Substance: ALENDRONIC ACID
     Indication: Rheumatoid arthritis
     Route: 064
  11. ALENDRONIC ACID [Concomitant]
     Active Substance: ALENDRONIC ACID
     Indication: Product used for unknown indication
     Route: 065
  12. PREDNISONE [Concomitant]
     Active Substance: PREDNISONE
     Indication: Product used for unknown indication
     Route: 064
  13. ARAVA [Concomitant]
     Active Substance: LEFLUNOMIDE
     Indication: Rheumatoid arthritis
     Route: 048
  14. CAFFEINE CITRATE [Concomitant]
     Active Substance: CAFFEINE CITRATE
     Indication: Product used for unknown indication
     Route: 064
  15. CALCIUM CARBONATE [Concomitant]
     Active Substance: CALCIUM CARBONATE
     Indication: Product used for unknown indication
     Route: 065
  16. CALCIUM GLUBIONATE [Concomitant]
     Active Substance: CALCIUM GLUBIONATE
     Indication: Product used for unknown indication
     Route: 065
  17. CERTOLIZUMAB PEGOL [Concomitant]
     Active Substance: CERTOLIZUMAB PEGOL
     Indication: Rheumatoid arthritis
     Route: 058
  18. CETIRIZINE HYDROCHLORIDE [Concomitant]
     Active Substance: CETIRIZINE HYDROCHLORIDE
     Indication: Rheumatoid arthritis
     Route: 064
  19. CETIRIZINE HYDROCHLORIDE [Concomitant]
     Active Substance: CETIRIZINE HYDROCHLORIDE
     Route: 064
  20. CIMZIA [Concomitant]
     Active Substance: CERTOLIZUMAB PEGOL
     Indication: Rheumatoid arthritis
     Route: 064
  21. CIMZIA [Concomitant]
     Active Substance: CERTOLIZUMAB PEGOL
     Route: 058
  22. CIMZIA [Concomitant]
     Active Substance: CERTOLIZUMAB PEGOL
     Route: 064
  23. CODEINE [Concomitant]
     Active Substance: CODEINE
     Indication: Product used for unknown indication
     Route: 064
  24. CORTISONE ACETATE [Concomitant]
     Active Substance: CORTISONE ACETATE
     Indication: Rheumatoid arthritis
     Route: 064
  25. CORTISONE ACETATE [Concomitant]
     Active Substance: CORTISONE ACETATE
     Route: 064
  26. CORTISONE ACETATE [Concomitant]
     Active Substance: CORTISONE ACETATE
     Route: 058
  27. CORTISONE ACETATE [Concomitant]
     Active Substance: CORTISONE ACETATE
     Route: 061
  28. CORTISONE ACETATE [Concomitant]
     Active Substance: CORTISONE ACETATE
     Route: 048
  29. COSENTYX [Concomitant]
     Active Substance: SECUKINUMAB
     Indication: Product used for unknown indication
     Route: 065
  30. DESOXIMETASONE [Concomitant]
     Active Substance: DESOXIMETASONE
     Indication: Rheumatoid arthritis
     Route: 061
  31. DESOXIMETASONE [Concomitant]
     Active Substance: DESOXIMETASONE
     Route: 048
  32. DESOXIMETASONE [Concomitant]
     Active Substance: DESOXIMETASONE
     Route: 064
  33. DICLOFENAC POTASSIUM [Concomitant]
     Active Substance: DICLOFENAC POTASSIUM
     Indication: Product used for unknown indication
     Route: 065
  34. DICLOFENAC SODIUM [Concomitant]
     Active Substance: DICLOFENAC SODIUM
     Indication: Product used for unknown indication
     Route: 064
  35. DIPHENHYDRAMINE HYDROCHLORIDE [Concomitant]
     Active Substance: DIPHENHYDRAMINE HYDROCHLORIDE
     Indication: Product used for unknown indication
     Route: 064
  36. ENBREL [Concomitant]
     Active Substance: ETANERCEPT
     Indication: Rheumatoid arthritis
     Route: 064
  37. ENBREL [Concomitant]
     Active Substance: ETANERCEPT
     Route: 058
  38. ERGOCALCIFEROL [Concomitant]
     Active Substance: ERGOCALCIFEROL
     Indication: Product used for unknown indication
     Route: 065
  39. FOLIC ACID [Concomitant]
     Active Substance: FOLIC ACID
     Indication: Rheumatoid arthritis
     Route: 064
  40. FOLIC ACID [Concomitant]
     Active Substance: FOLIC ACID
     Route: 048
  41. FOLIC ACID [Concomitant]
     Active Substance: FOLIC ACID
     Route: 064
  42. FOLIC ACID [Concomitant]
     Active Substance: FOLIC ACID
     Route: 064
  43. FOLIC ACID [Concomitant]
     Active Substance: FOLIC ACID
     Route: 064
  44. FOSAMAX [Concomitant]
     Active Substance: ALENDRONATE SODIUM
     Indication: Rheumatoid arthritis
     Route: 064
  45. FOSAMAX [Concomitant]
     Active Substance: ALENDRONATE SODIUM
     Route: 048
  46. GOLIMUMAB [Concomitant]
     Active Substance: GOLIMUMAB
     Indication: Product used for unknown indication
     Route: 064
  47. HUMIRA [Concomitant]
     Active Substance: ADALIMUMAB
     Indication: Rheumatoid arthritis
     Dosage: SOLUTION SUBCUTANEOUS
     Route: 064
  48. HUMIRA [Concomitant]
     Active Substance: ADALIMUMAB
     Route: 064
  49. HUMIRA [Concomitant]
     Active Substance: ADALIMUMAB
     Route: 058
  50. HUMIRA [Concomitant]
     Active Substance: ADALIMUMAB
     Route: 064
  51. HYDROCORTISONE ACETATE [Concomitant]
     Active Substance: HYDROCORTISONE ACETATE
     Indication: Product used for unknown indication
     Route: 048
  52. HYDROCORTISONE ACETATE [Concomitant]
     Active Substance: HYDROCORTISONE ACETATE
     Route: 064
  53. HYDROXYCHLOROQUINE [Concomitant]
     Active Substance: HYDROXYCHLOROQUINE
     Indication: Rheumatoid arthritis
     Route: 064
  54. HYDROXYCHLOROQUINE SULFATE [Concomitant]
     Active Substance: HYDROXYCHLOROQUINE SULFATE
     Indication: Rheumatoid arthritis
     Route: 048
  55. HYDROXYCHLOROQUINE SULFATE [Concomitant]
     Active Substance: HYDROXYCHLOROQUINE SULFATE
     Route: 065
  56. IBUPROFEN [Concomitant]
     Active Substance: IBUPROFEN
     Indication: Product used for unknown indication
     Route: 064
  57. KEVZARA [Concomitant]
     Active Substance: SARILUMAB
     Indication: Rheumatoid arthritis
     Route: 064
  58. LEFLUNOMIDE [Concomitant]
     Active Substance: LEFLUNOMIDE
     Indication: Rheumatoid arthritis
     Route: 064
  59. LISINOPRIL [Concomitant]
     Active Substance: LISINOPRIL
     Indication: Rheumatoid arthritis
     Route: 064
  60. METHOTREXATE [Concomitant]
     Active Substance: METHOTREXATE
     Indication: Rheumatoid arthritis
     Route: 064
  61. METHOTREXATE [Concomitant]
     Active Substance: METHOTREXATE
     Route: 064
  62. METHOTREXATE [Concomitant]
     Active Substance: METHOTREXATE
     Route: 064
  63. METHOTREXATE [Concomitant]
     Active Substance: METHOTREXATE
     Route: 013
  64. OTEZLA [Concomitant]
     Active Substance: APREMILAST
     Indication: Rheumatoid arthritis
     Route: 048
  65. PHTHALYLSULFATHIAZOLE [Concomitant]
     Active Substance: PHTHALYLSULFATHIAZOLE
     Indication: Rheumatoid arthritis
     Route: 064
  66. PREDNISONE [Concomitant]
     Active Substance: PREDNISONE
     Indication: Product used for unknown indication
     Route: 064
  67. PREDNISONE [Concomitant]
     Active Substance: PREDNISONE
     Route: 048
  68. PREDNISONE [Concomitant]
     Active Substance: PREDNISONE
     Route: 064
  69. PREDNISONE [Concomitant]
     Active Substance: PREDNISONE
     Route: 061
  70. PSEUDOEPHEDRINE HYDROCHLORIDE [Concomitant]
     Active Substance: PSEUDOEPHEDRINE HYDROCHLORIDE
     Indication: Rheumatoid arthritis
     Route: 064
  71. PSEUDOEPHEDRINE HYDROCHLORIDE [Concomitant]
     Active Substance: PSEUDOEPHEDRINE HYDROCHLORIDE
     Route: 048
  72. CETIRIZINE HYDROCHLORIDE\PSEUDOEPHEDRINE HYDROCHLORIDE [Concomitant]
     Active Substance: CETIRIZINE HYDROCHLORIDE\PSEUDOEPHEDRINE HYDROCHLORIDE
     Indication: Rheumatoid arthritis
     Dosage: TABLET (EXTENDED-RELEASE)
     Route: 064
  73. CETIRIZINE HYDROCHLORIDE\PSEUDOEPHEDRINE HYDROCHLORIDE [Concomitant]
     Active Substance: CETIRIZINE HYDROCHLORIDE\PSEUDOEPHEDRINE HYDROCHLORIDE
     Route: 067
  74. REMICADE [Concomitant]
     Active Substance: INFLIXIMAB
     Indication: Rheumatoid arthritis
     Dosage: POWDER FOR SOLUTIO INTRAVENOUS
     Route: 064
  75. REMICADE [Concomitant]
     Active Substance: INFLIXIMAB
     Indication: Colitis ulcerative
     Route: 064
  76. REMICADE [Concomitant]
     Active Substance: INFLIXIMAB
     Route: 064
  77. REMICADE [Concomitant]
     Active Substance: INFLIXIMAB
     Route: 042
  78. RITUXIMAB [Concomitant]
     Active Substance: RITUXIMAB
     Indication: Rheumatoid arthritis
     Route: 064
  79. RITUXIMAB [Concomitant]
     Active Substance: RITUXIMAB
     Route: 058
  80. RITUXIMAB [Concomitant]
     Active Substance: RITUXIMAB
     Route: 042
  81. SULFASALAZINE [Concomitant]
     Active Substance: SULFASALAZINE
     Indication: Product used for unknown indication
     Route: 064
  82. SIMPONI [Concomitant]
     Active Substance: GOLIMUMAB
     Indication: Rheumatoid arthritis
     Route: 064
  83. SIMPONI [Concomitant]
     Active Substance: GOLIMUMAB
     Dosage: SOLUTION SUBCUTANEOUS
     Route: 064
  84. SIMPONI [Concomitant]
     Active Substance: GOLIMUMAB
     Route: 058
  85. SOLU-MEDROL [Concomitant]
     Active Substance: METHYLPREDNISOLONE SODIUM SUCCINATE
     Indication: Product used for unknown indication
     Route: 064
  86. STELARA [Concomitant]
     Active Substance: USTEKINUMAB
     Indication: Rheumatoid arthritis
     Dosage: SOLUTION SUBCUTANEOUS
     Route: 064
  87. SULFASALAZINE [Concomitant]
     Active Substance: SULFASALAZINE
     Indication: Rheumatoid arthritis
     Dosage: SOLUTION SUBCUTANEOUS
     Route: 048
  88. SULFASALAZINE [Concomitant]
     Active Substance: SULFASALAZINE
     Route: 048
  89. SULFASALAZINE [Concomitant]
     Active Substance: SULFASALAZINE
     Route: 064
  90. SULFASALAZINE [Concomitant]
     Active Substance: SULFASALAZINE
     Route: 058
  91. SULFASALAZINE [Concomitant]
     Active Substance: SULFASALAZINE
     Route: 064
  92. TOCILIZUMAB [Concomitant]
     Active Substance: TOCILIZUMAB
     Indication: Rheumatoid arthritis
     Route: 064
  93. TOCILIZUMAB [Concomitant]
     Active Substance: TOCILIZUMAB
     Route: 042
  94. TOFACITINIB CITRATE [Concomitant]
     Active Substance: TOFACITINIB CITRATE
     Indication: Product used for unknown indication
     Route: 065
  95. VITAMIN C [Concomitant]
     Active Substance: ASCORBIC ACID
     Indication: Product used for unknown indication
     Route: 065
  96. VITAMIN D3 [Concomitant]
     Active Substance: CHOLECALCIFEROL
     Indication: Product used for unknown indication
     Route: 065
  97. PREDNISONE [Concomitant]
     Active Substance: PREDNISONE
     Indication: Rheumatoid arthritis
     Route: 064
  98. PREDNISONE [Concomitant]
     Active Substance: PREDNISONE
     Route: 048
  99. XELJANZ [Concomitant]
     Active Substance: TOFACITINIB CITRATE
     Indication: Rheumatoid arthritis
     Route: 065
  100. XELJANZ [Concomitant]
     Active Substance: TOFACITINIB CITRATE
     Route: 064

REACTIONS (52)
  - Abdominal discomfort [Unknown]
  - Adverse event [Unknown]
  - Alopecia [Unknown]
  - Anti-cyclic citrullinated peptide antibody [Unknown]
  - Anti-cyclic citrullinated peptide antibody positive [Unknown]
  - Arthralgia [Unknown]
  - Arthropathy [Unknown]
  - Blister [Unknown]
  - Blood cholesterol increased [Unknown]
  - Condition aggravated [Unknown]
  - Decreased appetite [Unknown]
  - Diarrhoea [Unknown]
  - Discomfort [Unknown]
  - Drug ineffective [Unknown]
  - Drug intolerance [Unknown]
  - Duodenal ulcer perforation [Unknown]
  - Fatigue [Unknown]
  - Fibromyalgia [Unknown]
  - General physical health deterioration [Unknown]
  - Glossodynia [Unknown]
  - Hand deformity [Unknown]
  - Headache [Unknown]
  - Helicobacter infection [Unknown]
  - Hepatic enzyme increased [Unknown]
  - Hypercholesterolaemia [Unknown]
  - Hypersensitivity [Unknown]
  - Hypertension [Unknown]
  - Hypoaesthesia [Unknown]
  - Infusion related reaction [Unknown]
  - Injury [Unknown]
  - Intentional product use issue [Unknown]
  - Joint swelling [Unknown]
  - Liver injury [Unknown]
  - Malaise [Unknown]
  - Mobility decreased [Unknown]
  - Musculoskeletal stiffness [Unknown]
  - Pain [Unknown]
  - Pemphigus [Unknown]
  - Pericarditis [Unknown]
  - Product use issue [Unknown]
  - Psoriatic arthropathy [Unknown]
  - Rash [Unknown]
  - Rheumatic fever [Unknown]
  - Rheumatoid arthritis [Unknown]
  - Rheumatoid factor positive [Unknown]
  - Swelling [Unknown]
  - Synovitis [Unknown]
  - Systemic lupus erythematosus [Unknown]
  - Therapeutic product effect decreased [Unknown]
  - Treatment failure [Unknown]
  - Type 2 diabetes mellitus [Unknown]
  - Wound [Unknown]
